FAERS Safety Report 24966863 (Version 2)
Quarter: 2025Q1

REPORT INFORMATION
  Report Type: Spontaneous
  Country: US (occurrence: US)
  Receive Date: 20250213
  Receipt Date: 20250227
  Transmission Date: 20250409
  Serious: Yes (Death, Hospitalization, Disabling, Other)
  Sender: PFIZER
  Company Number: US-PFIZER INC-202500031386

PATIENT
  Sex: Male
  Weight: 63.2 kg

DRUGS (5)
  1. FENTANYL CITRATE [Suspect]
     Active Substance: FENTANYL CITRATE
     Route: 045
  2. FENTANYL CITRATE [Suspect]
     Active Substance: FENTANYL CITRATE
     Dates: start: 20230310
  3. CANNABIS SATIVA SUBSP. INDICA TOP [Concomitant]
     Active Substance: CANNABIS SATIVA SUBSP. INDICA TOP
  4. HEROIN [Concomitant]
     Active Substance: DIAMORPHINE
  5. ALPRAZOLAM [Concomitant]
     Active Substance: ALPRAZOLAM

REACTIONS (6)
  - Drug dependence [Fatal]
  - Drug abuse [Fatal]
  - Overdose [Fatal]
  - Toxicity to various agents [Fatal]
  - Loss of consciousness [Recovered/Resolved]
  - Off label use [Unknown]

NARRATIVE: CASE EVENT DATE: 20230310
